FAERS Safety Report 9238960 (Version 1)
Quarter: 2013Q2

REPORT INFORMATION
  Report Type: Spontaneous
  Country: US (occurrence: US)
  Receive Date: 20130418
  Receipt Date: 20130418
  Transmission Date: 20140414
  Serious: Yes (Hospitalization)
  Sender: FDA-Public Use
  Company Number: PHEH2013US008462

PATIENT
  Age: 43 Year
  Sex: Female
  Weight: 101 kg

DRUGS (7)
  1. GILENYA [Suspect]
     Indication: MULTIPLE SCLEROSIS
     Dosage: 0.5 MG, QD
     Route: 048
     Dates: end: 20130414
  2. TRAZODONE [Concomitant]
  3. PAXIL [Concomitant]
  4. BACLOFEN [Concomitant]
  5. XANAX [Concomitant]
  6. IBUPROFEN [Concomitant]
  7. PRILOSEC [Concomitant]

REACTIONS (3)
  - Hypertensive crisis [Recovering/Resolving]
  - Chest pain [Recovering/Resolving]
  - Blood pressure increased [Recovering/Resolving]
